FAERS Safety Report 4324912-2 (Version None)
Quarter: 2004Q1

REPORT INFORMATION
  Report Type: 
  Country: None (occurrence: None)
  Receive Date: 20040322
  Receipt Date: 20040308
  Transmission Date: 20041129
  Serious: No
  Sender: FDA-Public Use
  Company Number: 2004CG00495

PATIENT
  Age: 21 Year
  Sex: Female

DRUGS (4)
  1. XYLOCAINE [Suspect]
     Indication: ANALGESIC EFFECT
     Dates: start: 19760701, end: 19781201
  2. XYLOCAINE [Suspect]
     Indication: ANALGESIC EFFECT
     Dates: start: 19820101, end: 19851201
  3. EXTENCILLINE [Suspect]
     Indication: ERYTHEMA NODOSUM
     Dates: start: 19760701, end: 19781201
  4. EXTENCILLINE [Suspect]
     Indication: ERYTHEMA NODOSUM
     Dates: start: 19820101, end: 19850101

REACTIONS (4)
  - DYSPNOEA [None]
  - ERYTHEMA NODOSUM [None]
  - HEARING IMPAIRED [None]
  - MULTIPLE SCLEROSIS [None]
